FAERS Safety Report 6166676-6 (Version None)
Quarter: 2009Q2

REPORT INFORMATION
  Report Type: 
  Country: None (occurrence: None)
  Receive Date: 20090424
  Receipt Date: 20090415
  Transmission Date: 20091009
  Serious: Yes (Hospitalization)
  Sender: FDA-Public Use
  Company Number: PL-PURDUE-DEU_2009_0005196

PATIENT
  Age: 44 Year
  Sex: Female
  Weight: 55 kg

DRUGS (5)
  1. MST CONTINUS 200 MG [Suspect]
     Indication: CANCER PAIN
     Dosage: 400 MG, UNK
     Route: 048
     Dates: start: 20090101
  2. IFOSFAMIDE [Concomitant]
     Route: 042
     Dates: start: 20090209, end: 20090211
  3. MESNA [Concomitant]
     Route: 042
     Dates: start: 20090209, end: 20090211
  4. ATOSSA                             /00955301/ [Concomitant]
     Route: 017
     Dates: start: 20090209, end: 20090211
  5. METOCLOPRAMIDE [Concomitant]

REACTIONS (6)
  - AGITATION [None]
  - ALTERED STATE OF CONSCIOUSNESS [None]
  - CONFUSIONAL STATE [None]
  - HYPERHIDROSIS [None]
  - INCORRECT DRUG ADMINISTRATION DURATION [None]
  - MEMORY IMPAIRMENT [None]
